FAERS Safety Report 17371388 (Version 2)
Quarter: 2020Q1

REPORT INFORMATION
  Report Type: Spontaneous
  Country: IT (occurrence: IT)
  Receive Date: 20200205
  Receipt Date: 20200212
  Transmission Date: 20200409
  Serious: Yes (Hospitalization)
  Sender: FDA-Public Use
  Company Number: IT-ASTRAZENECA-2020SE17457

PATIENT
  Age: 70 Year
  Sex: Male

DRUGS (7)
  1. HUMALOG [Concomitant]
     Active Substance: INSULIN LISPRO
     Route: 065
  2. LANTUS [Concomitant]
     Active Substance: INSULIN GLARGINE
     Route: 065
  3. BRILIQUE [Suspect]
     Active Substance: TICAGRELOR
     Indication: THROMBOSIS PROPHYLAXIS
     Route: 048
     Dates: start: 20180101, end: 20200125
  4. CARDICOR [Concomitant]
     Active Substance: BISOPROLOL
     Route: 048
  5. TORVAST [Concomitant]
     Active Substance: ATORVASTATIN
     Route: 065
  6. CARDIOASPIRIN [Suspect]
     Active Substance: ASPIRIN
     Indication: THROMBOSIS PROPHYLAXIS
     Route: 048
     Dates: start: 20180101, end: 20200125
  7. APROVEL [Concomitant]
     Active Substance: IRBESARTAN
     Route: 065

REACTIONS (2)
  - Cerebral haemorrhage [Recovered/Resolved with Sequelae]
  - Dysarthria [Recovered/Resolved with Sequelae]

NARRATIVE: CASE EVENT DATE: 20200125
